FAERS Safety Report 13598832 (Version 1)
Quarter: 2017Q2

REPORT INFORMATION
  Report Type: Spontaneous
  Country: US (occurrence: US)
  Receive Date: 20170531
  Receipt Date: 20170531
  Transmission Date: 20170830
  Serious: No
  Sender: FDA-Public Use
  Company Number: US-ALARA PHARMACEUTICAL CORPORATION-2021427

PATIENT
  Sex: Female
  Weight: 63.64 kg

DRUGS (1)
  1. LEVO-T [Suspect]
     Active Substance: LEVOTHYROXINE SODIUM
     Indication: HYPOTHYROIDISM
     Route: 048

REACTIONS (3)
  - Rash [Not Recovered/Not Resolved]
  - Product odour abnormal [Unknown]
  - Swelling face [Not Recovered/Not Resolved]
